FAERS Safety Report 13166694 (Version 3)
Quarter: 2017Q1

REPORT INFORMATION
  Report Type: Spontaneous
  Country: US (occurrence: US)
  Receive Date: 20170131
  Receipt Date: 20170310
  Transmission Date: 20170428
  Serious: No
  Sender: FDA-Public Use
  Company Number: US-ASTRAZENECA-2017SE07443

PATIENT
  Age: 51 Year
  Weight: 104.3 kg

DRUGS (5)
  1. ALL-DAY ALLERGY [Concomitant]
     Indication: MULTIPLE ALLERGIES
     Dosage: DAILY
     Route: 048
  2. DIVAN [Concomitant]
     Indication: HYPERTENSION
     Route: 048
     Dates: start: 2009, end: 2016
  3. CRESTOR [Suspect]
     Active Substance: ROSUVASTATIN CALCIUM
     Indication: BLOOD CHOLESTEROL INCREASED
     Route: 048
     Dates: start: 2007
  4. SYMBICORT [Suspect]
     Active Substance: BUDESONIDE\FORMOTEROL FUMARATE DIHYDRATE
     Indication: ASTHMA
     Dosage: 160/4.5MCG EVERY EIGHT HOURS
     Route: 055
     Dates: start: 2015
  5. SYMBICORT [Suspect]
     Active Substance: BUDESONIDE\FORMOTEROL FUMARATE DIHYDRATE
     Indication: DYSPNOEA
     Dosage: 160/4.5MCG EVERY EIGHT HOURS
     Route: 055
     Dates: start: 2015

REACTIONS (6)
  - Off label use [Unknown]
  - Device malfunction [Unknown]
  - Incorrect dose administered [Unknown]
  - Dyspnoea [Unknown]
  - Intentional product misuse [Unknown]
  - Device failure [Unknown]

NARRATIVE: CASE EVENT DATE: 2015
